FAERS Safety Report 6407890-1 (Version None)
Quarter: 2009Q4

REPORT INFORMATION
  Report Type: 
  Country: None (occurrence: None)
  Receive Date: 20091015
  Receipt Date: 20091006
  Transmission Date: 20100525
  Serious: Yes (Hospitalization)
  Sender: FDA-Public Use
  Company Number: 09US004225

PATIENT
  Age: 80 Year
  Sex: Female
  Weight: 74.8 kg

DRUGS (3)
  1. IBUPROFEN [Suspect]
     Indication: ARTHRALGIA
     Dosage: 400 MG, PRN, ORAL
     Route: 048
     Dates: start: 20090908
  2. IBUPROFEN [Suspect]
     Indication: BACK PAIN
     Dosage: 400 MG, PRN, ORAL
     Route: 048
     Dates: start: 20090908
  3. SYMBICORT [Concomitant]

REACTIONS (4)
  - DIZZINESS [None]
  - HEAD INJURY [None]
  - LACERATION [None]
  - SYNCOPE [None]
